FAERS Safety Report 4775636-9 (Version None)
Quarter: 2005Q3

REPORT INFORMATION
  Report Type: 
  Country: None (occurrence: None)
  Receive Date: 20050920
  Receipt Date: 20050920
  Transmission Date: 20060218
  Serious: Yes (Hospitalization)
  Sender: FDA-Public Use
  Company Number: None

PATIENT
  Age: 64 Year
  Sex: Male

DRUGS (1)
  1. PRINZIDE [Suspect]
     Indication: HYPERTENSION
     Dosage: DAILY
     Dates: start: 20050505, end: 20050508

REACTIONS (2)
  - DYSPNOEA [None]
  - SWOLLEN TONGUE [None]
